FAERS Safety Report 7366065-2 (Version None)
Quarter: 2011Q1

REPORT INFORMATION
  Report Type: 
  Country: None (occurrence: None)
  Receive Date: 20110322
  Receipt Date: 20110310
  Transmission Date: 20110831
  Serious: Yes (Other)
  Sender: FDA-Public Use
  Company Number: FR-SANOFI-AVENTIS-2011SA001479

PATIENT
  Age: 88 Year
  Sex: Male
  Weight: 70 kg

DRUGS (12)
  1. NEBIVOLOL HCL [Concomitant]
     Indication: CARDIOMYOPATHY
     Route: 048
  2. LASIX [Concomitant]
     Route: 048
  3. MULTAQ [Suspect]
     Indication: ATRIAL FIBRILLATION
     Route: 048
     Dates: start: 20101227, end: 20101227
  4. VIT K ANTAGONISTS [Concomitant]
     Route: 048
     Dates: end: 20101227
  5. DIFFU K [Concomitant]
     Route: 048
  6. PERMIXON [Concomitant]
     Route: 048
  7. MULTAQ [Suspect]
     Route: 048
     Dates: start: 20101228, end: 20101229
  8. ASPEGIC 325 [Concomitant]
     Indication: PERIPHERAL ARTERIAL OCCLUSIVE DISEASE
     Route: 048
  9. TAHOR [Concomitant]
     Indication: CARDIOMYOPATHY
     Route: 048
  10. ALFUZOSIN [Concomitant]
     Route: 048
  11. ATARAX [Concomitant]
     Indication: ANXIETY
     Route: 048
  12. PANTOPRAZOLE [Concomitant]
     Indication: PROPHYLAXIS
     Route: 048

REACTIONS (2)
  - INTERNATIONAL NORMALISED RATIO INCREASED [None]
  - UNDERDOSE [None]
